FAERS Safety Report 18434603 (Version 2)
Quarter: 2020Q4

REPORT INFORMATION
  Report Type: Spontaneous
  Country: JP (occurrence: JP)
  Receive Date: 20201028
  Receipt Date: 20201030
  Transmission Date: 20210114
  Serious: Yes (Hospitalization, Other)
  Sender: FDA-Public Use
  Company Number: JP-ALVOGEN-2020-ALVOGEN-114994

PATIENT
  Age: 12 Year
  Sex: Female

DRUGS (4)
  1. LISINOPRIL. [Suspect]
     Active Substance: LISINOPRIL
     Indication: GLOMERULONEPHRITIS MEMBRANOPROLIFERATIVE
     Route: 048
  2. EPINEPHRINE. [Concomitant]
     Active Substance: EPINEPHRINE
     Indication: GLOMERULONEPHRITIS MEMBRANOPROLIFERATIVE
     Route: 065
  3. MIZORIBINE [Concomitant]
     Active Substance: MIZORIBINE
     Indication: GLOMERULONEPHRITIS MEMBRANOPROLIFERATIVE
     Route: 065
  4. DIPYRIDAMOLE. [Concomitant]
     Active Substance: DIPYRIDAMOLE
     Indication: GLOMERULONEPHRITIS MEMBRANOPROLIFERATIVE
     Route: 065

REACTIONS (1)
  - Toxic epidermal necrolysis [Recovering/Resolving]
